FAERS Safety Report 5474480-7 (Version None)
Quarter: 2007Q4

REPORT INFORMATION
  Report Type: 
  Country: None (occurrence: None)
  Receive Date: 20071002
  Receipt Date: 20070919
  Transmission Date: 20080405
  Serious: Yes (Hospitalization)
  Sender: FDA-Public Use
  Company Number: US-ELI_LILLY_AND_COMPANY-US200707006928

PATIENT
  Sex: Female

DRUGS (5)
  1. ZOLOFT [Concomitant]
     Dosage: UNK, DAILY (1/D)
  2. PREVACID [Concomitant]
     Dosage: UNK, DAILY (1/D)
  3. TOPROL-XL [Concomitant]
     Dosage: UNK, DAILY (1/D)
  4. LASIX [Concomitant]
     Dosage: UNK, DAILY (1/D)
  5. FORTEO [Suspect]

REACTIONS (5)
  - ASTHENIA [None]
  - HOSPITALISATION [None]
  - HYPOTENSION [None]
  - MOVEMENT DISORDER [None]
  - POSTURE ABNORMAL [None]
